FAERS Safety Report 25094973 (Version 2)
Quarter: 2025Q1

REPORT INFORMATION
  Report Type: Spontaneous
  Country: US (occurrence: US)
  Receive Date: 20250319
  Receipt Date: 20250319
  Transmission Date: 20250408
  Serious: Yes (Other)
  Sender: AMGEN
  Company Number: US-AMGEN-USASP2025050427

PATIENT
  Age: 4 Year
  Sex: Female

DRUGS (6)
  1. RITUXIMAB [Suspect]
     Active Substance: RITUXIMAB
     Indication: Myasthenia gravis
     Dosage: 375 MILLIGRAM/SQ. METER, QWK FOR 4 WEEKS (250MG EACH WEEK)
     Route: 065
  2. PREDNISONE [Suspect]
     Active Substance: PREDNISONE
     Indication: Myasthenia gravis
     Dosage: 20 MILLIGRAM, QD (1.5 MG/KG/DAY)
     Route: 065
  3. PREDNISONE [Suspect]
     Active Substance: PREDNISONE
     Dosage: 10 MILLIGRAM, QD (0.53 MG/KG/DAY)
     Route: 065
  4. PYRIDOSTIGMINE [Concomitant]
     Active Substance: PYRIDOSTIGMINE
     Dosage: 7.2 MILLIGRAM, TID (0.5 MG/KG)
     Route: 065
  5. PYRIDOSTIGMINE [Concomitant]
     Active Substance: PYRIDOSTIGMINE
     Dosage: 12 MILLIGRAM, TID (0.63 MG/KG)
     Route: 065
  6. HUMAN IMMUNOGLOBULIN G [Concomitant]
     Active Substance: HUMAN IMMUNOGLOBULIN G
     Route: 040

REACTIONS (6)
  - Myasthenia gravis [Recovered/Resolved]
  - Hypertensive emergency [Recovered/Resolved]
  - Drug effective for unapproved indication [Unknown]
  - Drug ineffective [Unknown]
  - Adverse drug reaction [Recovered/Resolved]
  - Off label use [Unknown]
